FAERS Safety Report 8197970-5 (Version None)
Quarter: 2012Q1

REPORT INFORMATION
  Report Type: 
  Country: None (occurrence: None)
  Receive Date: 20120309
  Receipt Date: 20111219
  Transmission Date: 20120608
  Serious: No
  Sender: FDA-Public Use
  Company Number: US-AMGEN-USASP2011067823

PATIENT
  Sex: Female

DRUGS (4)
  1. XGEVA [Suspect]
     Indication: BREAST CANCER METASTATIC
     Dosage: UNK UNK, Q4WK
     Dates: start: 20110401
  2. GEMZAR [Concomitant]
  3. VITAMIN D [Concomitant]
  4. MULTI-VITAMIN [Concomitant]

REACTIONS (4)
  - VIITH NERVE PARALYSIS [None]
  - PLATELET COUNT DECREASED [None]
  - HYPOAESTHESIA TEETH [None]
  - PAIN IN JAW [None]
